FAERS Safety Report 7941292-1 (Version None)
Quarter: 2011Q4

REPORT INFORMATION
  Report Type: 
  Country: None (occurrence: None)
  Receive Date: 20111128
  Receipt Date: 20111117
  Transmission Date: 20120403
  Serious: Yes (Hospitalization)
  Sender: FDA-Public Use
  Company Number: DE-B.I. PHARMACEUTICALS,INC./RIDGEFIELD-2009-DE-03888DE

PATIENT
  Age: 77 Year
  Sex: Male

DRUGS (6)
  1. DIOVAN HCT [Suspect]
     Indication: HYPERTENSION
     Dosage: 1 ANZ
     Route: 048
     Dates: end: 20081121
  2. TAMSULOSIN HCL [Concomitant]
     Indication: BENIGN PROSTATIC HYPERPLASIA
     Dosage: 0.4 MG
     Route: 048
  3. PANTOPRAZOLE SODIUM [Concomitant]
     Indication: PROPHYLAXIS AGAINST GASTROINTESTINAL ULCER
     Dosage: 20 MG
     Route: 048
  4. PRADAXA [Suspect]
     Indication: HIP ARTHROPLASTY
     Dosage: 2 ANZ
     Route: 048
     Dates: start: 20081016, end: 20081120
  5. ATENOLOL [Concomitant]
     Indication: HYPERTENSION
     Dosage: 50 MG
     Route: 048
  6. BACTRIM [Suspect]
     Indication: URINARY TRACT INFECTION
     Dosage: 2 ANZ
     Route: 048
     Dates: start: 20081001, end: 20081121

REACTIONS (7)
  - ACTIVATED PARTIAL THROMBOPLASTIN TIME [None]
  - LIPASE [None]
  - HAEMOGLOBIN [None]
  - BLOOD UREA [None]
  - RENAL FAILURE ACUTE [None]
  - C-REACTIVE PROTEIN [None]
  - BLOOD CREATININE [None]
